FAERS Safety Report 25604384 (Version 1)
Quarter: 2025Q3

REPORT INFORMATION
  Report Type: Report from Study
  Country: CA (occurrence: CA)
  Receive Date: 20250725
  Receipt Date: 20250725
  Transmission Date: 20251021
  Serious: Yes (Hospitalization)
  Sender: ROCHE
  Company Number: CA-ROCHE-10000341553

PATIENT
  Sex: Male

DRUGS (1)
  1. OCREVUS [Suspect]
     Active Substance: OCRELIZUMAB
     Indication: Relapsing-remitting multiple sclerosis
     Dosage: 300 MG AT DAY 0 AND DAY 14 AND THEN 600MG EVERY 6 MONTHS
     Route: 042
     Dates: start: 20220616

REACTIONS (5)
  - Road traffic accident [Unknown]
  - Clavicle fracture [Recovering/Resolving]
  - Rib fracture [Recovering/Resolving]
  - Shoulder fracture [Recovering/Resolving]
  - Bone disorder [Recovering/Resolving]
